FAERS Safety Report 9170815 (Version 2)
Quarter: 2013Q1

REPORT INFORMATION
  Report Type: Spontaneous
  Country: NO (occurrence: None)
  Receive Date: 20130311
  Receipt Date: 20130327
  Transmission Date: 20140127
  Serious: Yes (Other)
  Sender: FDA-Public Use
  Company Number: 201303011

PATIENT
  Age: 69 Year
  Sex: Male

DRUGS (3)
  1. XIAPEX (CLOSTRIDIAL COLLAGENASE) [Suspect]
     Indication: PRODUCT USED FOR UNKNOWN INDICATION
     Dosage: 1 IN 1 D, INTRALESIONAL
     Dates: start: 20121204, end: 20121204
  2. LIPITOR (ATORVASTATIN CALCIUM) [Concomitant]
  3. COAPROVEL (HYDROCHLOROTHIAZIDE) [Concomitant]

REACTIONS (3)
  - Gamma-glutamyltransferase increased [None]
  - Drug interaction [None]
  - Serum ferritin abnormal [None]
